FAERS Safety Report 17097104 (Version 1)
Quarter: 2019Q4

REPORT INFORMATION
  Report Type: Spontaneous
  Country: US (occurrence: US)
  Receive Date: 20191104
  Receipt Date: 20191104
  Transmission Date: 20200122
  Serious: Yes (Hospitalization)
  Sender: FDA-Public Use
  Company Number: None

PATIENT
  Age: 43 Year
  Sex: Female

DRUGS (16)
  1. ALIGN CAP [Concomitant]
  2. LYRICA CAP [Concomitant]
  3. PERCOCET TAB [Concomitant]
  4. DICLOFEN POT [Concomitant]
  5. AMTRIPTYLIN TAB [Concomitant]
  6. ZOLOFT [Concomitant]
     Active Substance: SERTRALINE HYDROCHLORIDE
  7. NAPROXEN SOD TAB [Concomitant]
  8. IMITREX TAB [Concomitant]
  9. SKELAXIN TAB [Concomitant]
  10. SOLIRIS INJ [Concomitant]
  11. HUMIRA [Suspect]
     Active Substance: ADALIMUMAB
     Dosage: ?          OTHER DOSE:40MG/0.4ML;?
     Route: 058
  12. TRIPLE FLEX TAB [Concomitant]
  13. ALLGY TAB [Concomitant]
  14. PRILOSEC OTC TAB [Concomitant]
  15. CYCLOBENZAPR TAB [Concomitant]
  16. MULTI-VITAMIN TAB [Concomitant]

REACTIONS (2)
  - Surgery [None]
  - Therapy cessation [None]

NARRATIVE: CASE EVENT DATE: 20191101
